FAERS Safety Report 13313791 (Version 2)
Quarter: 2017Q1

REPORT INFORMATION
  Report Type: Spontaneous
  Country: CH (occurrence: CH)
  Receive Date: 20170309
  Receipt Date: 20170329
  Transmission Date: 20170428
  Serious: Yes (Other)
  Sender: FDA-Public Use
  Company Number: CH-BAUSCH-BL-2017-005113

PATIENT
  Sex: Female

DRUGS (5)
  1. TIMOPTIC [Suspect]
     Active Substance: TIMOLOL MALEATE
     Indication: GLAUCOMA
     Dosage: IN THE MORNING
     Route: 047
     Dates: start: 2016
  2. XANAX [Concomitant]
     Active Substance: ALPRAZOLAM
     Indication: PRODUCT USED FOR UNKNOWN INDICATION
     Dosage: AROUND ONCE PER WEEK BUT CAN GET 2 OR 3 PER DAY AT SOME OCCASION
  3. ESTRADOT [Concomitant]
     Active Substance: ESTRADIOL
     Indication: PRODUCT USED FOR UNKNOWN INDICATION
  4. FLUCTINE [Concomitant]
     Active Substance: FLUOXETINE HYDROCHLORIDE
     Indication: ANTIDEPRESSANT THERAPY
     Dosage: DAILY
  5. KALCIPOS D3 [Concomitant]
     Indication: PRODUCT USED FOR UNKNOWN INDICATION

REACTIONS (12)
  - Blister [Recovered/Resolved]
  - Eye irritation [Not Recovered/Not Resolved]
  - Head discomfort [Recovered/Resolved]
  - Frostbite [Recovered/Resolved]
  - Vertigo [Recovered/Resolved]
  - Hypotension [Recovered/Resolved]
  - Eye pruritus [Not Recovered/Not Resolved]
  - Foreign body sensation in eyes [Not Recovered/Not Resolved]
  - Dyspnoea [Recovered/Resolved]
  - Raynaud^s phenomenon [Recovered/Resolved]
  - Eye pain [Not Recovered/Not Resolved]
  - Peripheral coldness [Recovered/Resolved]
